FAERS Safety Report 5623259-1 (Version None)
Quarter: 2008Q1

REPORT INFORMATION
  Report Type: 
  Country: None (occurrence: None)
  Receive Date: 20080212
  Receipt Date: 20080128
  Transmission Date: 20080703
  Serious: Yes (Death, Hospitalization)
  Sender: FDA-Public Use
  Company Number: FR-ROCHE-544014

PATIENT
  Age: 58 Year
  Sex: Female
  Weight: 76 kg

DRUGS (7)
  1. XELODA [Suspect]
     Indication: BREAST CANCER METASTATIC
     Route: 065
     Dates: start: 20051124
  2. XELODA [Suspect]
     Route: 065
  3. CAELYX [Suspect]
     Indication: BREAST CANCER METASTATIC
     Dosage: FORM: INJECTABLE SOLUTION.
     Route: 042
     Dates: start: 20051018, end: 20051018
  4. SOLUPRED [Concomitant]
     Route: 048
     Dates: start: 20051023
  5. KENZEN [Concomitant]
     Route: 048
  6. PREDNISOLONE SODIUM M-SULFOBENZOATE [Concomitant]
  7. NEXIUM [Concomitant]
     Route: 048
     Dates: start: 20050201

REACTIONS (6)
  - BREAST CANCER [None]
  - CYANOSIS [None]
  - DRUG INTERACTION [None]
  - GENERAL PHYSICAL HEALTH DETERIORATION [None]
  - INJECTION SITE ERYTHEMA [None]
  - PALMAR-PLANTAR ERYTHRODYSAESTHESIA SYNDROME [None]
